FAERS Safety Report 7725901-8 (Version None)
Quarter: 2011Q3

REPORT INFORMATION
  Report Type: 
  Country: None (occurrence: None)
  Receive Date: 20110902
  Receipt Date: 20110830
  Transmission Date: 20111222
  Serious: Yes (Other)
  Sender: FDA-Public Use
  Company Number: US-SHIONOGI, INC-2011000152

PATIENT
  Age: 4 Year
  Sex: Male

DRUGS (3)
  1. KAPVAY [Suspect]
     Dosage: 0.1 MG, BID
     Route: 065
     Dates: start: 20110701
  2. CLONIDINE [Concomitant]
     Dosage: 0.1 MG, EVERY NIGHT, AT BEDTIME
     Dates: start: 20100101
  3. FOCALIN [Concomitant]
     Dosage: 15 MG, EVERY MORNING
     Dates: start: 20110101

REACTIONS (6)
  - DYSARTHRIA [None]
  - DECREASED EYE CONTACT [None]
  - ABNORMAL BEHAVIOUR [None]
  - ATTENTION DEFICIT/HYPERACTIVITY DISORDER [None]
  - PSYCHOTIC BEHAVIOUR [None]
  - SOCIAL AVOIDANT BEHAVIOUR [None]
